FAERS Safety Report 9358497 (Version 1)
Quarter: 2013Q2

REPORT INFORMATION
  Report Type: Spontaneous
  Country: US (occurrence: US)
  Receive Date: 20130620
  Receipt Date: 20130620
  Transmission Date: 20140414
  Serious: No
  Sender: FDA-Public Use
  Company Number: US-BAYER-2013-074699

PATIENT
  Age: 41 Year
  Sex: Female

DRUGS (2)
  1. GADAVIST [Suspect]
     Indication: NUCLEAR MAGNETIC RESONANCE IMAGING BRAIN
     Dosage: 6 ML, ONCE
     Route: 042
     Dates: start: 20130421, end: 20130421
  2. GADAVIST [Suspect]
     Indication: MULTIPLE SCLEROSIS

REACTIONS (1)
  - Rash [None]
